FAERS Safety Report 18824664 (Version 1)
Quarter: 2021Q1

REPORT INFORMATION
  Report Type: Spontaneous
  Country: US (occurrence: US)
  Receive Date: 20210201
  Receipt Date: 20210201
  Transmission Date: 20210419
  Serious: No
  Sender: FDA-Public Use
  Company Number: US-ABBVIE-20K-163-3301183-00

PATIENT

DRUGS (2)
  1. HUMIRA [Suspect]
     Active Substance: ADALIMUMAB
     Indication: PRODUCT USED FOR UNKNOWN INDICATION
     Route: 058
  2. HUMIRA [Suspect]
     Active Substance: ADALIMUMAB
     Route: 058

REACTIONS (25)
  - Hyperhidrosis [Not Recovered/Not Resolved]
  - Drug hypersensitivity [Unknown]
  - Feeling abnormal [Unknown]
  - Swollen tongue [Unknown]
  - Throat irritation [Unknown]
  - Memory impairment [Unknown]
  - Middle insomnia [Unknown]
  - Frustration tolerance decreased [Unknown]
  - Injection site erythema [Unknown]
  - Abdominal pain upper [Unknown]
  - Oropharyngeal pain [Unknown]
  - Injection site pain [Unknown]
  - Injection site papule [Unknown]
  - Injection site rash [Unknown]
  - Injection site mass [Unknown]
  - Cerebral disorder [Unknown]
  - Fatigue [Unknown]
  - Fatigue [Unknown]
  - Pharyngeal swelling [Unknown]
  - Dysphagia [Unknown]
  - Oropharyngeal discomfort [Unknown]
  - Nausea [Unknown]
  - Pain [Unknown]
  - Feeling abnormal [Unknown]
  - Injection site bruising [Unknown]

NARRATIVE: CASE EVENT DATE: 20161122
